FAERS Safety Report 9785246 (Version 1)
Quarter: 2013Q4

REPORT INFORMATION
  Report Type: Spontaneous
  Country: US (occurrence: None)
  Receive Date: 20131226
  Receipt Date: 20131226
  Transmission Date: 20140711
  Serious: Yes (Other)
  Sender: FDA-Public Use
  Company Number: None

PATIENT
  Age: 55 Year
  Sex: Male
  Weight: 74.84 kg

DRUGS (9)
  1. SPRYCEL [Suspect]
     Indication: CHRONIC MYELOID LEUKAEMIA
     Route: 048
     Dates: start: 20131017
  2. CIALIS [Concomitant]
  3. COREG [Concomitant]
  4. DIGOXIN [Concomitant]
  5. DIOVAN [Concomitant]
  6. FUROSEMIDE [Concomitant]
  7. OMEPRAZOLE [Concomitant]
  8. RANITIDINE [Concomitant]
  9. FLUTICASONE PROPIONATE [Concomitant]

REACTIONS (4)
  - Memory impairment [None]
  - Depression [None]
  - Hypoaesthesia [None]
  - Tongue biting [None]
